APPROVED DRUG PRODUCT: SITAGLIPTIN AND METFORMIN HYDROCHLORIDE
Active Ingredient: METFORMIN HYDROCHLORIDE; SITAGLIPTIN PHOSPHATE
Strength: 1GM;EQ 50MG BASE
Dosage Form/Route: TABLET;ORAL
Application: A202388 | Product #002 | TE Code: AB
Applicant: SANDOZ INC
Approved: Dec 2, 2025 | RLD: No | RS: No | Type: RX